FAERS Safety Report 5781204-2 (Version None)
Quarter: 2008Q2

REPORT INFORMATION
  Report Type: 
  Country: None (occurrence: None)
  Receive Date: 20080618
  Receipt Date: 20080609
  Transmission Date: 20081010
  Serious: Yes (Hospitalization)
  Sender: FDA-Public Use
  Company Number: 235456J08USA

PATIENT
  Age: 44 Year
  Sex: Male

DRUGS (3)
  1. REBIF [Suspect]
     Indication: MULTIPLE SCLEROSIS
     Dosage: 44 MCG, 3 IN 1 WEEKS, SUBCUTANEOUS
     Route: 058
     Dates: start: 20051021
  2. PHENYTEK (PHENYTOIN /00017401/) [Concomitant]
  3. VALIUM [Concomitant]

REACTIONS (4)
  - ALCOHOL WITHDRAWAL SYNDROME [None]
  - DRUG HYPERSENSITIVITY [None]
  - GRAND MAL CONVULSION [None]
  - HALLUCINATION [None]
